FAERS Safety Report 4937231-8 (Version None)
Quarter: 2006Q1

REPORT INFORMATION
  Report Type: 
  Country: None (occurrence: None)
  Receive Date: 20060302
  Receipt Date: 20060208
  Transmission Date: 20060701
  Serious: Yes (Death, Hospitalization)
  Sender: FDA-Public Use
  Company Number: TW200602002045

PATIENT
  Age: 59 Year
  Sex: Male

DRUGS (4)
  1. GEMCITABINE HYDROCHLORIDE (GEMCITABINE HYDROCHLORIDE UNKNOWN FORMULATI [Suspect]
     Indication: PANCREATIC CARCINOMA METASTATIC
  2. FLUOROURACIL [Concomitant]
  3. MITOMYCIN [Concomitant]
  4. CISPLATIN [Concomitant]

REACTIONS (5)
  - COMPUTERISED TOMOGRAM ABNORMAL [None]
  - DEPRESSED LEVEL OF CONSCIOUSNESS [None]
  - ISCHAEMIC STROKE [None]
  - PLATELET COUNT DECREASED [None]
  - PNEUMONIA [None]
